FAERS Safety Report 9298774 (Version 1)
Quarter: 2013Q2

REPORT INFORMATION
  Report Type: Spontaneous
  Country: CN (occurrence: CN)
  Receive Date: 20130520
  Receipt Date: 20130520
  Transmission Date: 20140414
  Serious: Yes (Death)
  Sender: FDA-Public Use
  Company Number: CN-GLAXOSMITHKLINE-B0892361A

PATIENT
  Sex: Male

DRUGS (1)
  1. VENTOLIN [Suspect]
     Indication: ASTHMA
     Route: 055
     Dates: start: 201210, end: 201210

REACTIONS (5)
  - Hypoxia [Fatal]
  - Overdose [Fatal]
  - Apnoea [Unknown]
  - Heart rate abnormal [Recovered/Resolved]
  - Product quality issue [Unknown]
